FAERS Safety Report 8638750 (Version 3)
Quarter: 2014Q1

REPORT INFORMATION
  Report Type: Report from Study
  Country: US (occurrence: US)
  Receive Date: 20120627
  Receipt Date: 20140120
  Transmission Date: 20141002
  Serious: Yes (Death, Hospitalization, Other)
  Sender: FDA-Public Use
  Company Number: US-ALEXION-A201201217

PATIENT
  Age: 65 Year
  Sex: Female

DRUGS (1)
  1. SOLIRIS [Suspect]
     Indication: HAEMOLYTIC URAEMIC SYNDROME
     Dosage: 900 MG, UNK
     Route: 042
     Dates: start: 20120609, end: 20120619

REACTIONS (7)
  - Embolic stroke [Fatal]
  - Unresponsive to stimuli [Unknown]
  - Cyanosis [Unknown]
  - Dyspnoea [Unknown]
  - Renal failure chronic [Unknown]
  - Platelet count decreased [Unknown]
  - Thrombotic microangiopathy [Unknown]
